FAERS Safety Report 7934897-5 (Version None)
Quarter: 2011Q4

REPORT INFORMATION
  Report Type: 
  Country: None (occurrence: None)
  Receive Date: 20111122
  Receipt Date: 20111117
  Transmission Date: 20120403
  Serious: Yes (Hospitalization)
  Sender: FDA-Public Use
  Company Number: US-BRISTOL-MYERS SQUIBB COMPANY-15948144

PATIENT

DRUGS (1)
  1. ONGLYZA [Suspect]

REACTIONS (3)
  - CARDIAC DISORDER [None]
  - PANCREATITIS [None]
  - RENAL FAILURE [None]
